FAERS Safety Report 8357527 (Version 3)
Quarter: 2013Q2

REPORT INFORMATION
  Report Type: Spontaneous
  Country: US (occurrence: None)
  Receive Date: 20120118
  Receipt Date: 20130430
  Transmission Date: 20140414
  Serious: Yes (Other)
  Sender: FDA-Public Use
  Company Number: ACO_26248_2011

PATIENT
  Age: 59 Year
  Sex: Male
  Weight: 78.5 kg

DRUGS (12)
  1. AMPYRA [Suspect]
     Indication: GAIT DISTURBANCE
     Dosage: 10 MG ORAL
     Route: 048
     Dates: start: 201007
  2. BRONKAID MIST [Suspect]
     Indication: PRODUCT USED FOR UNKNOWN INDICATION
     Dates: start: 20110803
  3. KLONOPIN [Concomitant]
  4. RAMIPRIL [Concomitant]
  5. SIMVASTATIN [Concomitant]
  6. PLAVIX [Concomitant]
  7. TRAMADOL HYDROCHLORIDE [Concomitant]
  8. ASPIRIN (ACETYLSALICYLIC ACID) [Concomitant]
  9. ATORVASTATIN (ATORVASTATIN) [Concomitant]
  10. NITROGLYCERIN (GLYCERYL TRINITRATE) [Concomitant]
  11. VITAMIN B-12 (CYANOCOBALAMIN) [Concomitant]
  12. VITAMIN D (ERGOCALCIFEROL) [Concomitant]

REACTIONS (10)
  - ACUTE MYOCARDIAL INFARCTION [None]
  - TREMOR [None]
  - GAIT DISTURBANCE [None]
  - Balance disorder [None]
  - MULTIPLE SCLEROSIS RELAPSE [None]
  - Coronary artery stenosis [None]
  - Head injury [None]
  - Fall [None]
  - Dehydration [None]
  - Upper respiratory tract infection [None]
